FAERS Safety Report 12158625 (Version 1)
Quarter: 2016Q1

REPORT INFORMATION
  Report Type: Spontaneous
  Country: US (occurrence: None)
  Receive Date: 20160307
  Receipt Date: 20160307
  Transmission Date: 20160526
  Serious: Yes (Life-Threatening, Hospitalization, Disabling)
  Sender: FDA-Public Use
  Company Number: None

PATIENT
  Age: 56 Year
  Sex: Male
  Weight: 102.06 kg

DRUGS (2)
  1. DIVALPROEX SODIUM 500 MG SUN PHARMACEUTICALS [Suspect]
     Active Substance: DIVALPROEX SODIUM
     Indication: EPILEPSY
     Route: 048
     Dates: start: 20160215, end: 20160306
  2. TYLENOL [Concomitant]
     Active Substance: ACETAMINOPHEN

REACTIONS (3)
  - Generalised tonic-clonic seizure [None]
  - Anticonvulsant drug level abnormal [None]
  - Seizure [None]

NARRATIVE: CASE EVENT DATE: 20160228
